FAERS Safety Report 7922214-6 (Version None)
Quarter: 2011Q4

REPORT INFORMATION
  Report Type: 
  Country: None (occurrence: None)
  Receive Date: 20111117
  Receipt Date: 20110205
  Transmission Date: 20120403
  Serious: No
  Sender: FDA-Public Use
  Company Number: US-AMGEN-USASP2010000718

PATIENT
  Age: 63 Year
  Sex: Male

DRUGS (2)
  1. ENBREL [Suspect]
     Indication: RHEUMATOID ARTHRITIS
     Dosage: 50 MG, QWK
     Route: 058
     Dates: start: 20100901
  2. METHOTREXATE [Concomitant]
     Dosage: 5 MG, UNK
     Dates: start: 20100701

REACTIONS (7)
  - COLONIC POLYP [None]
  - DRUG EFFECT DECREASED [None]
  - RHEUMATOID ARTHRITIS [None]
  - ARTHRALGIA [None]
  - DRUG INEFFECTIVE [None]
  - HAEMORRHOIDS [None]
  - OSTEOARTHRITIS [None]
